FAERS Safety Report 24072948 (Version 1)
Quarter: 2024Q3

REPORT INFORMATION
  Report Type: Spontaneous
  Country: US (occurrence: US)
  Receive Date: 20240710
  Receipt Date: 20240710
  Transmission Date: 20241016
  Serious: No
  Sender: RECORDATI
  Company Number: US-RECORDATI RARE DISEASE INC.-2024001372

PATIENT

DRUGS (4)
  1. PANHEMATIN [Suspect]
     Active Substance: HEMIN
     Indication: Porphyria
     Dosage: AS DIRECTED (5 DOSES FOR 5 DAYS)
     Route: 042
     Dates: start: 202309, end: 202309
  2. MOUNJARO [Suspect]
     Active Substance: TIRZEPATIDE
     Indication: Porphyria
     Dosage: ONE WEEK BEFORE THE TREATMENT WITH PANHEMATIN
     Dates: start: 2023
  3. MOUNJARO [Suspect]
     Active Substance: TIRZEPATIDE
     Indication: Off label use
  4. OZEMPIC [Suspect]
     Active Substance: SEMAGLUTIDE
     Indication: Porphyria
     Dosage: ONE WEEK BEFORE THE TREATMENT WITH PANHEMATIN THE PATIENT STOPPED THE USE OF OZEMPIC
     Dates: start: 2023, end: 2023

REACTIONS (4)
  - Hypoaesthesia [Not Recovered/Not Resolved]
  - Weight decreased [Unknown]
  - Back pain [Not Recovered/Not Resolved]
  - Paraesthesia [Not Recovered/Not Resolved]

NARRATIVE: CASE EVENT DATE: 20230101
